FAERS Safety Report 17183042 (Version 1)
Quarter: 2019Q4

REPORT INFORMATION
  Report Type: Spontaneous
  Country: US (occurrence: US)
  Receive Date: 20191220
  Receipt Date: 20191220
  Transmission Date: 20200122
  Serious: No
  Sender: FDA-Public Use
  Company Number: US-ASTRAZENECA-2019SF81064

PATIENT
  Sex: Female
  Weight: 6.2 kg

DRUGS (3)
  1. IRON [Concomitant]
     Active Substance: IRON
  2. POLY-VI-SOL [Concomitant]
     Active Substance: VITAMINS
  3. SYNAGIS [Suspect]
     Active Substance: PALIVIZUMAB
     Route: 030

REACTIONS (4)
  - Anger [Unknown]
  - Irritability [Unknown]
  - Crying [Unknown]
  - Influenza [Unknown]
